FAERS Safety Report 26028196 (Version 1)
Quarter: 2025Q4

REPORT INFORMATION
  Report Type: Spontaneous
  Country: US (occurrence: US)
  Receive Date: 20251111
  Receipt Date: 20251111
  Transmission Date: 20260117
  Serious: No
  Sender: ORASIS PHARMACEUTICALS
  Company Number: US-ORASIS PHARMACEUTIALS-2025ORA00114

PATIENT
  Age: 65 Year
  Sex: Male

DRUGS (1)
  1. QLOSI [Suspect]
     Active Substance: PILOCARPINE HYDROCHLORIDE
     Dosage: 1 DROP (INTO EACH EYE), 2X/DAY (7 AM AND 11 AM)
     Route: 047
     Dates: start: 202507

REACTIONS (3)
  - Vitreous floaters [Recovering/Resolving]
  - Therapeutic response shortened [Not Recovered/Not Resolved]
  - Headache [Unknown]

NARRATIVE: CASE EVENT DATE: 20250701
